FAERS Safety Report 14244653 (Version 1)
Quarter: 2017Q4

REPORT INFORMATION
  Report Type: Spontaneous
  Country: US (occurrence: US)
  Receive Date: 20171201
  Receipt Date: 20171201
  Transmission Date: 20180321
  Serious: Yes (Hospitalization)
  Sender: FDA-Public Use
  Company Number: US-BAUSCH-BL-2017-032355

PATIENT
  Age: 30 Year
  Sex: Male

DRUGS (15)
  1. BACLOFEN. [Suspect]
     Active Substance: BACLOFEN
     Dosage: BASAL CONTINUOUS INFUSION RATE WAS 620 MICROG/DAY
     Route: 037
  2. BACLOFEN. [Suspect]
     Active Substance: BACLOFEN
     Indication: MUSCLE SPASTICITY
     Route: 037
     Dates: start: 2010
  3. BACLOFEN. [Suspect]
     Active Substance: BACLOFEN
     Dosage: REPLACED AS PART OF ROUTINE HARDWARE MAINTENANCE
     Route: 037
     Dates: start: 2016
  4. OXYCODONE [Suspect]
     Active Substance: OXYCODONE
     Indication: PRODUCT USED FOR UNKNOWN INDICATION
     Dosage: AS NEEDED
     Route: 065
  5. CIPROFLOXACIN. [Concomitant]
     Active Substance: CIPROFLOXACIN
     Indication: URINARY TRACT INFECTION
     Dosage: AS NEEDED
  6. BACLOFEN. [Suspect]
     Active Substance: BACLOFEN
     Route: 048
  7. BACLOFEN. [Suspect]
     Active Substance: BACLOFEN
     Route: 037
  8. MARIJUANA [Suspect]
     Active Substance: CANNABIS SATIVA SUBSP. INDICA TOP
     Indication: PRODUCT USED FOR UNKNOWN INDICATION
     Dosage: AS NEEDED
     Route: 065
  9. GABAPENTIN. [Suspect]
     Active Substance: GABAPENTIN
     Indication: PRODUCT USED FOR UNKNOWN INDICATION
  10. VANCOMYCIN [Concomitant]
     Active Substance: VANCOMYCIN
     Indication: URINARY TRACT INFECTION
  11. ATIVAN [Suspect]
     Active Substance: LORAZEPAM
     Indication: MUSCLE SPASTICITY
     Dosage: TWO DOSES
     Route: 042
  12. AMOXICILLIN. [Concomitant]
     Active Substance: AMOXICILLIN
     Indication: URINARY TRACT INFECTION
     Dosage: AS NEEDED
  13. CEFTRIAXONE. [Concomitant]
     Active Substance: CEFTRIAXONE
     Indication: URINARY TRACT INFECTION
  14. BACLOFEN. [Suspect]
     Active Substance: BACLOFEN
     Dosage: REVISED
     Route: 037
     Dates: start: 2013
  15. BACLOFEN. [Suspect]
     Active Substance: BACLOFEN
     Dosage: BOLUS; INCREASED THE INFUSION RATE
     Route: 037

REACTIONS (8)
  - Withdrawal syndrome [Unknown]
  - Device malfunction [Unknown]
  - Treatment failure [Unknown]
  - Drug effect incomplete [Unknown]
  - Device occlusion [Unknown]
  - Overdose [Unknown]
  - Drug ineffective [Not Recovered/Not Resolved]
  - Device kink [Unknown]

NARRATIVE: CASE EVENT DATE: 2013
